FAERS Safety Report 13092868 (Version 1)
Quarter: 2017Q1

REPORT INFORMATION
  Report Type: Spontaneous
  Country: US (occurrence: US)
  Receive Date: 20170106
  Receipt Date: 20170106
  Transmission Date: 20170428
  Serious: No
  Sender: FDA-Public Use
  Company Number: US-JNJFOC-20161221556

PATIENT
  Age: 79 Year
  Sex: Female

DRUGS (3)
  1. METOPROLOL. [Concomitant]
     Active Substance: METOPROLOL
     Indication: DIABETES MELLITUS
     Dosage: 25U
     Route: 065
  2. HUMULIN NOS [Concomitant]
     Active Substance: INSULIN HUMAN
     Indication: DIABETES MELLITUS
     Dosage: 60UNITS+40
     Route: 065
  3. TYLENOL EXTRA STRENGTH [Suspect]
     Active Substance: ACETAMINOPHEN
     Indication: PAIN
     Dosage: 1 TIME AT NIGHT
     Route: 048
     Dates: start: 20161221

REACTIONS (2)
  - Product label issue [Unknown]
  - Hypersomnia [Recovered/Resolved]

NARRATIVE: CASE EVENT DATE: 20161221
